FAERS Safety Report 4713996-5 (Version None)
Quarter: 2005Q3

REPORT INFORMATION
  Report Type: 
  Country: None (occurrence: None)
  Receive Date: 20050714
  Receipt Date: 20050704
  Transmission Date: 20060218
  Serious: Yes (Hospitalization)
  Sender: FDA-Public Use
  Company Number: FR-BOEHRINGER INGELHEIM PHARMACEUTICALS, INC.-2005-FF-00489FF

PATIENT
  Age: 67 Year
  Sex: Male

DRUGS (4)
  1. JOSIR [Suspect]
     Indication: PROSTATIC ADENOMA
     Route: 048
     Dates: start: 20050401
  2. SULFASALAZINE [Concomitant]
  3. CORTANCYL [Concomitant]
  4. DIPENTUM [Concomitant]

REACTIONS (2)
  - CONDITION AGGRAVATED [None]
  - CROHN'S DISEASE [None]
